FAERS Safety Report 10235021 (Version 1)
Quarter: 2014Q2

REPORT INFORMATION
  Report Type: Spontaneous
  Country: US (occurrence: None)
  Receive Date: 20140611
  Receipt Date: 20140611
  Transmission Date: 20141212
  Serious: Yes (Hospitalization, Other)
  Sender: FDA-Public Use
  Company Number: KAD201405-000573

PATIENT
  Age: 45 Year
  Sex: Male
  Weight: 89.8 kg

DRUGS (9)
  1. RIBAPAK (RIBAVIRIN) [Suspect]
     Indication: HEPATITIS C
     Dosage: 400MG IN MORNING, 600MG AT BEDTIME
  2. SOVALDI [Suspect]
     Indication: HEPATITIS C
     Dosage: TABLET,
  3. PEGINTRON [Suspect]
     Indication: HEPATITIS C
     Dosage: SUBCUTANEOUS
     Route: 058
  4. NORVASC [Concomitant]
  5. HYDROCHLOROTHIAZIDE (HYDROCHLOROTHIAZIDE) (HYDROCHLOROTHIAZIDE) [Concomitant]
  6. PRILOSEC [Concomitant]
  7. ZOFRAN [Concomitant]
  8. ELAVIL [Concomitant]
  9. COZAAR [Concomitant]

REACTIONS (3)
  - Colitis ischaemic [None]
  - Rectal haemorrhage [None]
  - Pyrexia [None]
